FAERS Safety Report 15675786 (Version 1)
Quarter: 2018Q4

REPORT INFORMATION
  Report Type: Spontaneous
  Country: CZ (occurrence: CZ)
  Receive Date: 20181130
  Receipt Date: 20181130
  Transmission Date: 20190205
  Serious: Yes (Other)
  Sender: FDA-Public Use
  Company Number: CZ-FRESENIUS KABI-FK201812028

PATIENT
  Sex: Female

DRUGS (2)
  1. NO DRUG NAME [Suspect]
     Active Substance: UNSPECIFIED INGREDIENT
     Indication: MYCOBACTERIUM ABSCESSUS INFECTION
  2. LINEZOLID (MANUFACTURER UNKNOWN) [Suspect]
     Active Substance: LINEZOLID
     Indication: MYCOBACTERIUM ABSCESSUS INFECTION
     Dosage: UNK
     Route: 065

REACTIONS (5)
  - Kussmaul respiration [Unknown]
  - Bone marrow failure [Unknown]
  - Altered state of consciousness [Unknown]
  - Lactic acidosis [Recovered/Resolved]
  - Neuropathy peripheral [Unknown]
